FAERS Safety Report 25576515 (Version 2)
Quarter: 2025Q3

REPORT INFORMATION
  Report Type: Spontaneous
  Country: US (occurrence: US)
  Receive Date: 20250718
  Receipt Date: 20250812
  Transmission Date: 20251021
  Serious: Yes (Other)
  Sender: BAYER HEALTHCARE PHARMACEUTICALS INC.
  Company Number: US-BAYER-2025A094438

PATIENT
  Age: 30 Year
  Sex: Female
  Weight: 72.562 kg

DRUGS (1)
  1. MIRENA [Suspect]
     Active Substance: LEVONORGESTREL
     Indication: Contraception
     Dosage: 20?G/DAY
     Route: 015
     Dates: start: 20250707, end: 20250707

REACTIONS (3)
  - Uterine perforation [Recovered/Resolved]
  - Device deployment issue [None]
  - Complication of device insertion [None]

NARRATIVE: CASE EVENT DATE: 20250707
